FAERS Safety Report 23015791 (Version 3)
Quarter: 2023Q4

REPORT INFORMATION
  Report Type: Report from Study
  Country: CN (occurrence: CN)
  Receive Date: 20231002
  Receipt Date: 20231018
  Transmission Date: 20240110
  Serious: Yes (Life-Threatening, Hospitalization)
  Sender: FDA-Public Use
  Company Number: CN-ZENITH EPIGENETICS LTD.-2023ZEN000038

PATIENT
  Age: 58 Year
  Sex: Female
  Weight: 41.5 kg

DRUGS (12)
  1. TALAZOPARIB [Suspect]
     Active Substance: TALAZOPARIB
     Indication: Triple negative breast cancer
     Dosage: 0.75 MILLIGRAM, DAILY
     Route: 048
     Dates: start: 20230428, end: 20230504
  2. TALAZOPARIB [Suspect]
     Active Substance: TALAZOPARIB
     Dosage: 0.75 MILLIGRAM, DAILY
     Route: 048
     Dates: start: 20230506, end: 20230511
  3. ZEN-003694 [Suspect]
     Active Substance: ZEN-003694
     Indication: Triple negative breast cancer
     Dosage: 48 MILLIGRAM, DAILY
     Route: 048
     Dates: start: 20230428, end: 20230504
  4. ZEN-003694 [Suspect]
     Active Substance: ZEN-003694
     Dosage: 48 MILLIGRAM, DAILY
     Route: 048
     Dates: start: 20230506, end: 20230511
  5. CALCIUM POLYCARBOPHIL [Concomitant]
     Active Substance: CALCIUM POLYCARBOPHIL
     Indication: Constipation
     Dosage: 1 GRAM, 3 TIMES DAILY
     Route: 048
     Dates: start: 20230424, end: 20230429
  6. OXYCODONE HYDROCHLORIDE [Concomitant]
     Active Substance: OXYCODONE HYDROCHLORIDE
     Indication: Analgesic therapy
     Dosage: 20 MILLIGRAM, EVERY 12 HOURS
     Route: 048
     Dates: start: 20230424, end: 20230429
  7. FAMOTIDINE [Concomitant]
     Active Substance: FAMOTIDINE
     Indication: Prophylaxis against gastrointestinal ulcer
     Dosage: 20 MILLIGRAM, 2X
     Route: 048
     Dates: start: 20230410, end: 20230511
  8. LOXOPROFEN SODIUM [Concomitant]
     Active Substance: LOXOPROFEN SODIUM
     Indication: Analgesic therapy
     Dosage: 60 MILLIGRAM, 3 TIMES DAILY
     Route: 048
     Dates: start: 20230430, end: 20230514
  9. ESTAZOLAM [Concomitant]
     Active Substance: ESTAZOLAM
     Indication: Insomnia
     Dosage: 2 MILLIGRAM, AT BEDTIME
     Route: 048
     Dates: start: 20230510, end: 20230526
  10. AMINOPHYLLINE\CHLORPHENIRAMINE MALEATE\METHOXYPHENAMINE HYDROCHLORIDE\ [Concomitant]
     Active Substance: AMINOPHYLLINE\CHLORPHENIRAMINE MALEATE\METHOXYPHENAMINE HYDROCHLORIDE\NOSCAPINE
     Indication: Cough
     Dosage: 2 CAPSULES, 3 TIMES DAILY
     Route: 048
     Dates: start: 20230510, end: 20230517
  11. CARBAZOCHROME [Concomitant]
     Active Substance: CARBAZOCHROME
     Indication: Gingival bleeding
     Dosage: 5 MILLIGRAM, 3 TIMES DAILY
     Route: 048
     Dates: start: 20230510, end: 20230515
  12. IBANDRONATE SODIUM [Concomitant]
     Active Substance: IBANDRONATE SODIUM
     Indication: Bone pain
     Dosage: 6 MILLIGRAM, DAILY
     Route: 042
     Dates: start: 20230510, end: 20230510

REACTIONS (3)
  - Platelet count decreased [Unknown]
  - Platelet count decreased [Recovering/Resolving]
  - Platelet count decreased [Recovering/Resolving]

NARRATIVE: CASE EVENT DATE: 20230512
